FAERS Safety Report 5320649-1 (Version None)
Quarter: 2007Q2

REPORT INFORMATION
  Report Type: 
  Country: None (occurrence: None)
  Receive Date: 20070509
  Receipt Date: 20070427
  Transmission Date: 20071010
  Serious: Yes (Hospitalization)
  Sender: FDA-Public Use
  Company Number: JP-PFIZER INC-2007026463

PATIENT
  Sex: Female
  Weight: 48 kg

DRUGS (6)
  1. VFEND [Suspect]
     Indication: BRONCHOPULMONARY ASPERGILLOSIS
     Route: 042
     Dates: start: 20070125, end: 20070125
  2. VFEND [Suspect]
     Dosage: DAILY DOSE:400MG
     Route: 042
     Dates: start: 20070126, end: 20070303
  3. MICAFUNGIN [Concomitant]
     Route: 042
     Dates: start: 20070116, end: 20070124
  4. DENOSINE ^TANABE^ [Concomitant]
     Route: 042
     Dates: start: 20070118, end: 20070215
  5. AMIKACIN SULFATE [Concomitant]
     Route: 042
     Dates: start: 20070125, end: 20070224
  6. MEROPEN [Concomitant]
     Route: 042
     Dates: start: 20070105, end: 20070203

REACTIONS (3)
  - CHOLESTASIS [None]
  - THROMBOCYTOPENIA [None]
  - THROMBOTIC MICROANGIOPATHY [None]
